FAERS Safety Report 6170221-9 (Version None)
Quarter: 2009Q2

REPORT INFORMATION
  Report Type: 
  Country: None (occurrence: None)
  Receive Date: 20090428
  Receipt Date: 20090427
  Transmission Date: 20091009
  Serious: Yes (Other)
  Sender: FDA-Public Use
  Company Number: PHHO2007DK04673

PATIENT
  Sex: Male

DRUGS (4)
  1. CIBADREX T29368+ [Suspect]
     Indication: HYPERTENSION
     Dosage: LEVEL 1
     Route: 048
     Dates: start: 20050329, end: 20050425
  2. CIBADREX T29368+ [Suspect]
     Dosage: LEVEL 2
     Route: 048
     Dates: start: 20050426, end: 20050621
  3. CIBADREX T29368+ [Suspect]
     Dosage: LEVEL 3
     Route: 048
     Dates: start: 20050622, end: 20050727
  4. CIBADREX T29368+ [Suspect]
     Dosage: LEVEL 2
     Route: 048
     Dates: start: 20050728, end: 20061024

REACTIONS (2)
  - HYPOTENSION [None]
  - SYNCOPE [None]
